FAERS Safety Report 7230768-0 (Version None)
Quarter: 2011Q1

REPORT INFORMATION
  Report Type: 
  Country: None (occurrence: None)
  Receive Date: 20110107
  Receipt Date: 20101223
  Transmission Date: 20110831
  Serious: Yes (Hospitalization)
  Sender: FDA-Public Use
  Company Number: 2010005620

PATIENT
  Age: 79 Year
  Sex: Male

DRUGS (2)
  1. ERLOTINIB (TABLET) [Suspect]
     Indication: NON-SMALL CELL LUNG CANCER
     Dosage: (MG), ORAL
     Route: 048
     Dates: start: 20101001
  2. ERIBULIN MESYLATE [Suspect]
     Indication: NON-SMALL CELL LUNG CANCER
     Dosage: (3.28 MG, 2 X PER 21), INTRAVENOUS
     Route: 042
     Dates: start: 20100930

REACTIONS (2)
  - VOMITING [None]
  - FEBRILE NEUTROPENIA [None]
